FAERS Safety Report 9490907 (Version 1)
Quarter: 2013Q3

REPORT INFORMATION
  Report Type: Spontaneous
  Country: US (occurrence: US)
  Receive Date: 20130830
  Receipt Date: 20130830
  Transmission Date: 20140515
  Serious: No
  Sender: FDA-Public Use
  Company Number: US-PFIZER INC-2013245770

PATIENT
  Age: 38 Year
  Sex: Male
  Weight: 113 kg

DRUGS (2)
  1. CHANTIX [Suspect]
     Indication: SMOKING CESSATION THERAPY
     Dosage: UNK
     Dates: start: 2012
  2. LISINOPRIL W/HYDROCHLOROTHIAZIDE [Suspect]
     Indication: HYPERTENSION
     Dosage: 20MG (LISINOPRIL)/12.5MG (HYDROCHLOROTHIAZIDE), 2X/DAY

REACTIONS (5)
  - Abnormal dreams [Unknown]
  - Hypotension [Unknown]
  - Tobacco user [Unknown]
  - Blood pressure increased [Unknown]
  - Sluggishness [Unknown]
